FAERS Safety Report 25777788 (Version 1)
Quarter: 2025Q3

REPORT INFORMATION
  Report Type: Spontaneous
  Country: US (occurrence: US)
  Receive Date: 20250909
  Receipt Date: 20250909
  Transmission Date: 20251020
  Serious: No
  Sender: MAYNE
  Company Number: US-MAYNE PHARMA-2024MYN000571

PATIENT
  Sex: Female

DRUGS (2)
  1. ANNOVERA [Suspect]
     Active Substance: ETHINYL ESTRADIOL\SEGESTERONE ACETATE
     Indication: Contraception
     Route: 067
     Dates: start: 20241016
  2. ANNOVERA [Suspect]
     Active Substance: ETHINYL ESTRADIOL\SEGESTERONE ACETATE
     Indication: Polycystic ovarian syndrome

REACTIONS (3)
  - Vaginal haemorrhage [Unknown]
  - Product prescribing issue [Unknown]
  - Off label use [Unknown]
